FAERS Safety Report 12997336 (Version 2)
Quarter: 2016Q4

REPORT INFORMATION
  Report Type: Spontaneous
  Country: DE (occurrence: DE)
  Receive Date: 20161205
  Receipt Date: 20161219
  Transmission Date: 20170207
  Serious: Yes (Other)
  Sender: FDA-Public Use
  Company Number: DE-SUN PHARMACEUTICAL INDUSTRIES LTD-2016R1-128786

PATIENT
  Age: 24 Year
  Sex: Male
  Weight: 75 kg

DRUGS (1)
  1. AMITRIPTYLINE [Suspect]
     Active Substance: AMITRIPTYLINE
     Indication: TENSION HEADACHE
     Dosage: UNK
     Route: 048
     Dates: start: 20161107

REACTIONS (5)
  - Palpitations [Recovering/Resolving]
  - Hyperhidrosis [Recovering/Resolving]
  - Binge eating [Recovering/Resolving]
  - Hyperthyroidism [Unknown]
  - Initial insomnia [Recovering/Resolving]

NARRATIVE: CASE EVENT DATE: 2016
